FAERS Safety Report 8000187-8 (Version None)
Quarter: 2011Q4

REPORT INFORMATION
  Report Type: 
  Country: None (occurrence: None)
  Receive Date: 20111222
  Receipt Date: 20111212
  Transmission Date: 20120403
  Serious: No
  Sender: FDA-Public Use
  Company Number: US-ELI_LILLY_AND_COMPANY-US201111004627

PATIENT
  Sex: Male
  Weight: 120.18 kg

DRUGS (14)
  1. NORCO [Concomitant]
  2. VITAMIN B-12 [Concomitant]
  3. SIMVASTATIN [Concomitant]
  4. FISH OIL [Concomitant]
  5. LISINOPRIL [Concomitant]
  6. CYMBALTA [Suspect]
     Dosage: 30 MG, EACH EVENING
     Route: 048
     Dates: start: 20110911, end: 20110911
  7. VITAMIN B3 [Concomitant]
  8. IBUPROFEN [Concomitant]
  9. LEVOTHROID [Concomitant]
  10. CALCIUM CARBONATE [Concomitant]
  11. GABAPENTIN [Concomitant]
  12. HYDROCHLOROTHIAZIDE [Concomitant]
  13. TIZANIDINE HCL [Concomitant]
  14. HYDROCODONE [Concomitant]

REACTIONS (2)
  - DIZZINESS [None]
  - DYSPNOEA [None]
